FAERS Safety Report 9995703 (Version 1)
Quarter: 2014Q1

REPORT INFORMATION
  Report Type: Spontaneous
  Country: IT (occurrence: IT)
  Receive Date: 20140311
  Receipt Date: 20140311
  Transmission Date: 20141002
  Serious: Yes (Hospitalization)
  Sender: FDA-Public Use
  Company Number: IT-SA-2014SA028635

PATIENT
  Age: 67 Year
  Sex: Male

DRUGS (5)
  1. PLAVIX [Suspect]
     Indication: THROMBOSIS PROPHYLAXIS
     Route: 048
     Dates: start: 20130101, end: 20140131
  2. OKI [Suspect]
     Indication: PRODUCT USED FOR UNKNOWN INDICATION
     Dosage: STRENGTH: 80 MG
     Route: 048
     Dates: start: 20140128, end: 20140130
  3. OLMESARTAN MEDOXOMIL [Concomitant]
     Route: 048
  4. PRAVASTATIN [Concomitant]
     Route: 048
  5. IPERTEN [Concomitant]
     Route: 048

REACTIONS (5)
  - Asthenia [Unknown]
  - Decreased appetite [Unknown]
  - Abdominal pain upper [Unknown]
  - Gastric haemorrhage [Unknown]
  - Shock haemorrhagic [Unknown]
